FAERS Safety Report 17852271 (Version 1)
Quarter: 2020Q2

REPORT INFORMATION
  Report Type: Report from Study
  Country: None (occurrence: US)
  Receive Date: 20200602
  Receipt Date: 20200602
  Transmission Date: 20200714
  Serious: Yes (Other)
  Sender: FDA-Public Use
  Company Number: US-ABBVIE-20P-163-3419918-00

PATIENT
  Age: 72 Year
  Sex: Female

DRUGS (2)
  1. LANTUS SOLOSTAR [Concomitant]
     Active Substance: INSULIN GLARGINE
     Indication: PRODUCT USED FOR UNKNOWN INDICATION
  2. IMBRUVICA [Suspect]
     Active Substance: IBRUTINIB
     Indication: CHRONIC LYMPHOCYTIC LEUKAEMIA
     Route: 048

REACTIONS (5)
  - Speech disorder [Unknown]
  - Confusional state [Recovering/Resolving]
  - Contusion [Recovering/Resolving]
  - Hallucination, visual [Recovering/Resolving]
  - Haemorrhage [Unknown]

NARRATIVE: CASE EVENT DATE: 20200301
